FAERS Safety Report 5883482-8 (Version None)
Quarter: 2008Q3

REPORT INFORMATION
  Report Type: 
  Country: None (occurrence: None)
  Receive Date: 20080915
  Receipt Date: 20080905
  Transmission Date: 20090109
  Serious: Yes (Other)
  Sender: FDA-Public Use
  Company Number: PHHY2008DE20616

PATIENT
  Sex: Female

DRUGS (1)
  1. FEMARA [Suspect]
     Indication: BREAST CANCER
     Dosage: UNK

REACTIONS (5)
  - GENERAL PHYSICAL HEALTH DETERIORATION [None]
  - LEUKAEMIA MONOCYTIC [None]
  - LEUKOPENIA [None]
  - MONOCYTOSIS [None]
  - NEUTROPENIA [None]
